FAERS Safety Report 8262077-5 (Version None)
Quarter: 2012Q2

REPORT INFORMATION
  Report Type: 
  Country: None (occurrence: None)
  Receive Date: 20120402
  Receipt Date: 20120328
  Transmission Date: 20120825
  Serious: Yes (Hospitalization)
  Sender: FDA-Public Use
  Company Number: 2011SP054069

PATIENT
  Age: 22 Year
  Sex: Female
  Weight: 59 kg

DRUGS (1)
  1. NEXPLANON [Suspect]
     Indication: CONTRACEPTION
     Dosage: 1 DF;
     Dates: start: 20111106, end: 20111112

REACTIONS (4)
  - IMPLANT SITE INFLAMMATION [None]
  - IMPLANT SITE CELLULITIS [None]
  - CELLULITIS STREPTOCOCCAL [None]
  - DERMATOPHYTOSIS [None]
